FAERS Safety Report 5987027-3 (Version None)
Quarter: 2008Q4

REPORT INFORMATION
  Report Type: 
  Country: None (occurrence: None)
  Receive Date: 20081209
  Receipt Date: 20081127
  Transmission Date: 20090506
  Serious: Yes (Other)
  Sender: FDA-Public Use
  Company Number: B0548888A

PATIENT
  Age: 23 Year
  Sex: Male

DRUGS (3)
  1. LAMICTAL [Suspect]
     Indication: EPILEPSY
     Dosage: 200MG PER DAY
     Route: 048
     Dates: start: 20070501
  2. DEPAKENE [Suspect]
     Indication: EPILEPSY
     Route: 065
     Dates: start: 20080801
  3. TEGRETOL [Suspect]
     Indication: EPILEPSY
     Route: 065
     Dates: start: 20070501, end: 20080801

REACTIONS (7)
  - CONFUSIONAL STATE [None]
  - CONJUNCTIVAL HYPERAEMIA [None]
  - INFLUENZA [None]
  - LOSS OF CONSCIOUSNESS [None]
  - MEMORY IMPAIRMENT [None]
  - PYREXIA [None]
  - TREMOR [None]
